FAERS Safety Report 25902173 (Version 1)
Quarter: 2025Q4

REPORT INFORMATION
  Report Type: Spontaneous
  Country: US (occurrence: US)
  Receive Date: 20251009
  Receipt Date: 20251009
  Transmission Date: 20260118
  Serious: No
  Sender: CB FLEET
  Company Number: US-PRESTIGE-202502-US-000780

PATIENT
  Sex: Female

DRUGS (1)
  1. MONISTAT 3 [Suspect]
     Active Substance: MICONAZOLE NITRATE
     Indication: Product used for unknown indication
     Dosage: UNKNOWN
     Route: 067

REACTIONS (3)
  - Pain [Unknown]
  - Vulvovaginal burning sensation [Unknown]
  - Vulvovaginal pruritus [Unknown]
